FAERS Safety Report 5483963-5 (Version None)
Quarter: 2007Q4

REPORT INFORMATION
  Report Type: 
  Country: None (occurrence: None)
  Receive Date: 20071012
  Receipt Date: 20071001
  Transmission Date: 20080405
  Serious: Yes (Hospitalization)
  Sender: FDA-Public Use
  Company Number: TR-ROCHE-522848

PATIENT
  Age: 15 Year
  Sex: Female

DRUGS (1)
  1. ISOTRETINOIN [Suspect]
     Dosage: TREATMENT WAS STARTED WITH 0.5MG/KG OF ISOTRETINOIN. FIVE WEEKS LATER THE DOSAGE OF ISOTRETINOIN WA+
     Route: 065

REACTIONS (2)
  - NEUTROPENIA [None]
  - PYREXIA [None]
